FAERS Safety Report 10219992 (Version 1)
Quarter: 2014Q2

REPORT INFORMATION
  Report Type: Spontaneous
  Country: BR (occurrence: BR)
  Receive Date: 20140605
  Receipt Date: 20140605
  Transmission Date: 20141212
  Serious: Yes (Other)
  Sender: FDA-Public Use
  Company Number: BR-ASTRAZENECA-2014SE37130

PATIENT
  Sex: Female

DRUGS (6)
  1. SELOZOK [Suspect]
     Indication: ISCHAEMIC HEART DISEASE PROPHYLAXIS
     Route: 048
     Dates: start: 20111004, end: 20140514
  2. LOSARTAN POTASSIUM [Concomitant]
  3. AMLODIPINE BESYLATE [Concomitant]
  4. ASPIRIN [Concomitant]
  5. UNKNOWN [Concomitant]
     Indication: BLOOD CHOLESTEROL ABNORMAL
  6. UNKNOWN [Concomitant]
     Indication: BLOOD TRIGLYCERIDES ABNORMAL

REACTIONS (4)
  - Arrhythmia [Unknown]
  - Drug dose omission [Not Recovered/Not Resolved]
  - Off label use [Recovered/Resolved]
  - Off label use [Recovered/Resolved]
